FAERS Safety Report 5057920-7 (Version None)
Quarter: 2006Q3

REPORT INFORMATION
  Report Type: 
  Country: None (occurrence: None)
  Receive Date: 20060721
  Receipt Date: 20060403
  Transmission Date: 20061208
  Serious: No
  Sender: FDA-Public Use
  Company Number: US-GLAXOSMITHKLINE-A0600105A

PATIENT
  Age: 59 Year
  Sex: Female

DRUGS (7)
  1. AVANDIA [Suspect]
     Route: 048
  2. LIPITOR [Concomitant]
  3. ZETIA [Concomitant]
  4. DIOVAN [Concomitant]
  5. ASPIRIN [Concomitant]
  6. CALCIUM GLUCONATE [Concomitant]
  7. FLAX OIL [Concomitant]

REACTIONS (1)
  - BLOOD GLUCOSE INCREASED [None]
